FAERS Safety Report 7472311-7 (Version None)
Quarter: 2011Q2

REPORT INFORMATION
  Report Type: 
  Country: None (occurrence: None)
  Receive Date: 20110502
  Receipt Date: 20110414
  Transmission Date: 20111010
  Serious: Yes (Other)
  Sender: FDA-Public Use
  Company Number: 2011-00442

PATIENT
  Age: 63 Year
  Sex: Male

DRUGS (2)
  1. SIMVASTATIN [Suspect]
     Indication: PROPHYLAXIS
     Dosage: 40 MG (40 MG, 1 IN 1 D),ORAL
     Route: 048
  2. ACETYLSALICYLIC ACID +DIPYRIDAMOL (ASASANTIN RETARD) [Concomitant]

REACTIONS (1)
  - TENDON RUPTURE [None]
